FAERS Safety Report 8326833-7 (Version None)
Quarter: 2012Q2

REPORT INFORMATION
  Report Type: 
  Country: None (occurrence: None)
  Receive Date: 20120501
  Receipt Date: 20120424
  Transmission Date: 20120825
  Serious: Yes (Hospitalization)
  Sender: FDA-Public Use
  Company Number: JP-ABBOTT-11P-087-0886817-00

PATIENT
  Sex: Male
  Weight: 66 kg

DRUGS (16)
  1. MESALAMINE [Concomitant]
     Indication: CROHN'S DISEASE
     Route: 048
  2. HERBAL MEDICINE (HOCHUEKKITO) [Concomitant]
     Indication: PRODUCT USED FOR UNKNOWN INDICATION
     Route: 048
     Dates: start: 20110624
  3. CLOSTRIDIUM BUTYRICUM [Concomitant]
     Indication: CROHN'S DISEASE
     Route: 048
  4. COLIBACILLUS VACCINE/HYDROCORTISONE [Concomitant]
     Indication: CROHN'S DISEASE
     Route: 061
     Dates: end: 20110624
  5. ISONIAZID [Concomitant]
     Indication: ANTIBIOTIC PROPHYLAXIS
     Route: 048
     Dates: start: 20100810, end: 20110708
  6. ELENTAL [Suspect]
     Indication: CROHN'S DISEASE
  7. CHOLEBRINE [Suspect]
     Indication: PRODUCT USED FOR UNKNOWN INDICATION
     Route: 048
     Dates: end: 20110710
  8. DAIKENCHUTO [Concomitant]
     Indication: CROHN'S DISEASE
     Route: 048
  9. OMEPRAZOLE [Concomitant]
     Indication: CROHN'S DISEASE
     Route: 048
  10. HUMIRA [Suspect]
     Dates: start: 20110415, end: 20110415
  11. HUMIRA [Suspect]
     Dates: start: 20110428, end: 20110624
  12. LIDOCAINE/ETHYL AMINOBENZOATE/BISMUTH SUBGALLATE [Concomitant]
     Indication: CROHN'S DISEASE
     Route: 054
     Dates: end: 20110624
  13. HUMIRA [Suspect]
     Dates: start: 20110826
  14. HUMIRA [Suspect]
     Indication: CROHN'S DISEASE
     Route: 058
     Dates: start: 20110401, end: 20110401
  15. PYRIDOXAL PHOSPHATE HYDRATE [Concomitant]
     Indication: PROPHYLAXIS
     Dates: end: 20110708
  16. AZATHIOPRINE SODIUM [Suspect]
     Indication: CROHN'S DISEASE
     Route: 048
     Dates: end: 20110704

REACTIONS (8)
  - INJECTION SITE REACTION [None]
  - URTICARIA [None]
  - DIARRHOEA [None]
  - ENTEROCOLITIS VIRAL [None]
  - GASTROINTESTINAL HAEMORRHAGE [None]
  - VITAMIN K DEFICIENCY [None]
  - WHITE BLOOD CELL COUNT DECREASED [None]
  - STOMATITIS [None]
